FAERS Safety Report 8464978-1 (Version None)
Quarter: 2012Q2

REPORT INFORMATION
  Report Type: 
  Country: None (occurrence: None)
  Receive Date: 20120626
  Receipt Date: 20120615
  Transmission Date: 20120825
  Serious: Yes (Hospitalization)
  Sender: FDA-Public Use
  Company Number: DE-ASTELLAS-2012US005515

PATIENT
  Sex: Female

DRUGS (3)
  1. GEMCITABINE HYDROCHLORIDE [Concomitant]
     Indication: PANCREATIC CARCINOMA
     Dosage: 1000 MG/M2, WEEKLY
     Route: 042
     Dates: start: 20120515, end: 20120515
  2. GEMCITABINE HYDROCHLORIDE [Concomitant]
     Dosage: 750 MG/M2, WEEKLY
     Dates: start: 20120530, end: 20120530
  3. ERLOTINIB HYDROCHLORIDE [Suspect]
     Indication: PANCREATIC CARCINOMA
     Dosage: 100 MG, UID/QD
     Route: 048
     Dates: start: 20120515, end: 20120521

REACTIONS (4)
  - ATRIAL FIBRILLATION [None]
  - ASCITES [None]
  - DYSPNOEA [None]
  - INFECTION [None]
